FAERS Safety Report 8563806-3 (Version None)
Quarter: 2012Q3

REPORT INFORMATION
  Report Type: 
  Country: None (occurrence: None)
  Receive Date: 20120727
  Receipt Date: 20120727
  Transmission Date: 20120928
  Serious: No
  Sender: FDA-Public Use
  Company Number: None

PATIENT
  Age: 54 Year
  Sex: Female
  Weight: 77.1115 kg

DRUGS (2)
  1. EXECEDREN EXTRA STRENTH NOVERTIS [Suspect]
     Indication: BACK PAIN
     Dosage: 1  3
     Dates: start: 20050402
  2. EXECEDREN EXTRA STRENTH NOVERTIS [Suspect]
     Indication: HEADACHE
     Dosage: 1  3
     Dates: start: 20050402

REACTIONS (5)
  - CONFUSIONAL STATE [None]
  - LOSS OF CONSCIOUSNESS [None]
  - DYSPNOEA [None]
  - CONVULSION [None]
  - CRYING [None]
